FAERS Safety Report 4890547-6 (Version None)
Quarter: 2006Q1

REPORT INFORMATION
  Report Type: 
  Country: None (occurrence: None)
  Receive Date: 20060123
  Receipt Date: 20060109
  Transmission Date: 20060701
  Serious: Yes (Hospitalization)
  Sender: FDA-Public Use
  Company Number: 2005BI021430

PATIENT
  Age: 53 Year
  Sex: Female

DRUGS (2)
  1. AVONEX [Suspect]
     Indication: MULTIPLE SCLEROSIS
     Dosage: 30 UG; QW; IM
     Route: 030
     Dates: start: 20040218, end: 20051117
  2. ANTIBIOTIC [Concomitant]

REACTIONS (8)
  - AMNESIA [None]
  - ASTHENIA [None]
  - DELIRIUM [None]
  - FATIGUE [None]
  - HALLUCINATION [None]
  - NONSPECIFIC REACTION [None]
  - PAIN IN EXTREMITY [None]
  - POST PROCEDURAL COMPLICATION [None]
